FAERS Safety Report 7745839-X (Version None)
Quarter: 2011Q3

REPORT INFORMATION
  Report Type: 
  Country: None (occurrence: None)
  Receive Date: 20110913
  Receipt Date: 20110907
  Transmission Date: 20111222
  Serious: Yes (Hospitalization)
  Sender: FDA-Public Use
  Company Number: US-ABBOTT-11P-163-0844048-00

PATIENT
  Sex: Female

DRUGS (4)
  1. AMLODIPINE [Concomitant]
     Indication: BLOOD PRESSURE
     Dosage: 2 MG DAILY
     Route: 048
  2. PROVIGIL [Concomitant]
     Indication: NARCOLEPSY
     Dosage: 100MG DAILY
     Route: 048
  3. HUMIRA [Suspect]
     Indication: PSORIASIS
     Dates: start: 20110629, end: 20110727
  4. HUMIRA [Suspect]
     Indication: PSORIATIC ARTHROPATHY

REACTIONS (6)
  - BALANCE DISORDER [None]
  - JOINT SWELLING [None]
  - HIP FRACTURE [None]
  - BLOOD POTASSIUM DECREASED [None]
  - ARTHRALGIA [None]
  - FALL [None]
